FAERS Safety Report 5286585-4 (Version None)
Quarter: 2007Q1

REPORT INFORMATION
  Report Type: 
  Country: None (occurrence: None)
  Receive Date: 20070104
  Receipt Date: 20060919
  Transmission Date: 20070707
  Serious: No
  Sender: FDA-Public Use
  Company Number: BDI-008664

PATIENT
  Age: 27 Year
  Sex: Male
  Weight: 76.36 kg

DRUGS (2)
  1. MULTIHANCE [Suspect]
     Indication: LYME DISEASE
     Dosage: 16 ML ONCE IV
     Route: 042
     Dates: start: 20060918, end: 20060918
  2. MULTIHANCE [Suspect]
     Indication: NUCLEAR MAGNETIC RESONANCE IMAGING BRAIN
     Dosage: 16 ML ONCE IV
     Route: 042
     Dates: start: 20060918, end: 20060918

REACTIONS (1)
  - HYPERSENSITIVITY [None]
